FAERS Safety Report 20136093 (Version 1)
Quarter: 2021Q4

REPORT INFORMATION
  Report Type: Spontaneous
  Country: US (occurrence: US)
  Receive Date: 20211201
  Receipt Date: 20211201
  Transmission Date: 20220304
  Serious: Yes (Other)
  Sender: FDA-Public Use
  Company Number: US-OYSTER POINT PHARMA, INC.-2021OYS00041

PATIENT

DRUGS (1)
  1. TYRVAYA [Suspect]
     Active Substance: VARENICLINE TARTRATE
     Indication: Dry eye

REACTIONS (2)
  - Dyspnoea [Unknown]
  - Urticaria [Unknown]
